FAERS Safety Report 9372125 (Version 1)
Quarter: 2013Q2

REPORT INFORMATION
  Report Type: Spontaneous
  Country: GB (occurrence: GB)
  Receive Date: 20130627
  Receipt Date: 20130627
  Transmission Date: 20140414
  Serious: Yes (Hospitalization)
  Sender: FDA-Public Use
  Company Number: GB-SANOFI-AVENTIS-2013SA062853

PATIENT
  Age: 71 Year
  Sex: Male
  Weight: 92 kg

DRUGS (19)
  1. DRONEDARONE [Suspect]
     Indication: ATRIAL FIBRILLATION
     Dosage: RECEIVED TOTAL 8 DOSES
     Route: 065
  2. SOTALOL HYDROCHLORIDE [Interacting]
     Indication: PRODUCT USED FOR UNKNOWN INDICATION
     Route: 065
  3. SOTALOL HYDROCHLORIDE [Interacting]
     Indication: PRODUCT USED FOR UNKNOWN INDICATION
     Route: 065
  4. SOTALOL HYDROCHLORIDE [Interacting]
     Indication: PRODUCT USED FOR UNKNOWN INDICATION
     Route: 065
  5. SOTALOL HYDROCHLORIDE [Interacting]
     Indication: PRODUCT USED FOR UNKNOWN INDICATION
     Route: 065
  6. DIGOXIN [Interacting]
     Indication: ATRIAL FIBRILLATION
     Route: 065
  7. DIGOXIN [Interacting]
     Indication: ATRIAL FIBRILLATION
     Route: 065
  8. BISOPROLOL [Concomitant]
  9. ATORVASTATIN [Concomitant]
  10. ALLOPURINOL [Concomitant]
  11. FINASTERIDE [Concomitant]
  12. METFORMIN [Concomitant]
  13. GAVISCON ADVANCE [Concomitant]
  14. OMACOR [Concomitant]
  15. CANDESARTAN [Concomitant]
  16. DOXAZOSIN [Concomitant]
  17. SPIRONOLACTONE [Concomitant]
  18. SANDO K [Concomitant]
  19. WARFARIN [Concomitant]
     Dosage: APPROX 3.75 MG (ACCORDING TO INR)

REACTIONS (18)
  - Xanthopsia [Unknown]
  - Toxicity to various agents [Unknown]
  - Visual impairment [Unknown]
  - Diarrhoea [Recovered/Resolved]
  - Renal failure acute [Recovering/Resolving]
  - Oliguria [Recovering/Resolving]
  - Dizziness [Recovering/Resolving]
  - Nausea [Recovering/Resolving]
  - Abdominal pain [Recovering/Resolving]
  - Chromaturia [Recovering/Resolving]
  - Weight increased [Recovering/Resolving]
  - Oedema [Recovering/Resolving]
  - Glomerular filtration rate decreased [Recovering/Resolving]
  - Blood potassium increased [Recovering/Resolving]
  - Blood creatinine increased [Recovering/Resolving]
  - Blood urea increased [Recovering/Resolving]
  - International normalised ratio increased [Not Recovered/Not Resolved]
  - Drug interaction [Unknown]
